FAERS Safety Report 7497051-X (Version None)
Quarter: 2011Q2

REPORT INFORMATION
  Report Type: 
  Country: None (occurrence: None)
  Receive Date: 20110516
  Receipt Date: 20110503
  Transmission Date: 20111010
  Serious: Yes (Other)
  Sender: FDA-Public Use
  Company Number: 2011MA004914

PATIENT
  Age: 77 Year
  Sex: Female

DRUGS (1)
  1. HALOPERIDOL LACTATE [Suspect]
     Dosage: 5 MG;

REACTIONS (3)
  - LONG QT SYNDROME [None]
  - GENE MUTATION [None]
  - TORSADE DE POINTES [None]
